FAERS Safety Report 10563250 (Version 1)
Quarter: 2014Q4

REPORT INFORMATION
  Report Type: Spontaneous
  Country: US (occurrence: US)
  Receive Date: 20141104
  Receipt Date: 20141104
  Transmission Date: 20150529
  Serious: Yes (Hospitalization, Other)
  Sender: FDA-Public Use
  Company Number: US-BAYER-2014-161502

PATIENT
  Age: 50 Year
  Sex: Male
  Weight: 65.76 kg

DRUGS (14)
  1. AMPYRA [Suspect]
     Active Substance: DALFAMPRIDINE
     Indication: GAIT DISTURBANCE
     Dosage: 10 MG, BID
     Route: 048
     Dates: start: 2011
  2. VITAMIN B12 NOS [Concomitant]
     Indication: FATIGUE
     Dosage: 500 MG, UNK
  3. ALPRAZOLAM. [Concomitant]
     Active Substance: ALPRAZOLAM
     Indication: ANXIETY
     Dosage: 0.5 MG, BID
  4. OMEPRAZOLE. [Concomitant]
     Active Substance: OMEPRAZOLE
     Dosage: 40 MG, UNK
     Dates: start: 2009
  5. DONEPEZIL [Concomitant]
     Active Substance: DONEPEZIL
     Dosage: 10 MG, UNK
     Dates: start: 2011
  6. ZOLPIDEM [Concomitant]
     Active Substance: ZOLPIDEM\ZOLPIDEM TARTRATE
     Dosage: 10 MG, UNK
     Dates: start: 2007
  7. AMBIEN [Concomitant]
     Active Substance: ZOLPIDEM TARTRATE
     Dosage: 10 MG, UNK
     Dates: start: 2007
  8. NAMENDA [Concomitant]
     Active Substance: MEMANTINE HYDROCHLORIDE
     Dosage: 10 MG, UNK
     Dates: start: 2011
  9. TECFIDERA [Suspect]
     Active Substance: DIMETHYL FUMARATE
     Indication: MULTIPLE SCLEROSIS
     Dosage: 240 MG, BID
     Route: 048
  10. BETASERON [Suspect]
     Active Substance: INTERFERON BETA-1B
     Indication: MULTIPLE SCLEROSIS
     Dosage: UNK
     Dates: end: 2013
  11. XANAX [Concomitant]
     Active Substance: ALPRAZOLAM
     Indication: ANXIETY
     Dosage: 0.5 MG, BID
  12. ROPINIROLE. [Concomitant]
     Active Substance: ROPINIROLE
     Indication: MUSCLE SPASTICITY
     Dosage: 1 MG, UNK
     Dates: start: 2011
  13. GABAPENTIN. [Concomitant]
     Active Substance: GABAPENTIN
     Dosage: 100 MG, UNK
     Dates: start: 2014
  14. REBIF [Suspect]
     Active Substance: INTERFERON BETA-1A
     Indication: MULTIPLE SCLEROSIS
     Dosage: UNK
     Dates: end: 2013

REACTIONS (13)
  - Flushing [Recovering/Resolving]
  - Cough [Recovering/Resolving]
  - Visual impairment [Recovered/Resolved]
  - Balance disorder [Recovered/Resolved]
  - Drug ineffective [None]
  - Rhinorrhoea [Recovering/Resolving]
  - Multiple sclerosis relapse [Recovered/Resolved]
  - Feeling hot [Unknown]
  - Nasal congestion [Recovering/Resolving]
  - Binocular eye movement disorder [Recovered/Resolved]
  - Nasopharyngitis [Recovering/Resolving]
  - Weight decreased [Unknown]
  - Multiple sclerosis [None]

NARRATIVE: CASE EVENT DATE: 201311
